FAERS Safety Report 12056002 (Version 2)
Quarter: 2016Q1

REPORT INFORMATION
  Report Type: Spontaneous
  Country: IT (occurrence: IT)
  Receive Date: 20160209
  Receipt Date: 20160211
  Transmission Date: 20160526
  Serious: Yes (Life-Threatening, Hospitalization, Other)
  Sender: FDA-Public Use
  Company Number: IT-BRISTOL-MYERS SQUIBB COMPANY-BMS-2016-006230

PATIENT
  Age: 74 Year
  Sex: Female
  Weight: 64 kg

DRUGS (3)
  1. KETOPROFEN. [Concomitant]
     Active Substance: KETOPROFEN
     Indication: PRODUCT USED FOR UNKNOWN INDICATION
     Route: 065
  2. METFORMIN HYDROCHLORIDE. [Suspect]
     Active Substance: METFORMIN HYDROCHLORIDE
     Indication: DIABETES MELLITUS
     Dosage: 3 G, QD
     Route: 048
  3. IOPROMIDE [Interacting]
     Active Substance: IOPROMIDE
     Indication: PRODUCT USED FOR UNKNOWN INDICATION
     Dosage: 1 DF, UNK
     Route: 042
     Dates: start: 20151223, end: 20151223

REACTIONS (5)
  - Toxicity to various agents [Recovered/Resolved]
  - Anaphylactic shock [Recovered/Resolved]
  - Labelled drug-drug interaction medication error [Recovered/Resolved]
  - Acute kidney injury [Recovered/Resolved]
  - Lactic acidosis [Recovered/Resolved]

NARRATIVE: CASE EVENT DATE: 20151224
